FAERS Safety Report 8313971-8 (Version None)
Quarter: 2012Q2

REPORT INFORMATION
  Report Type: 
  Country: None (occurrence: None)
  Receive Date: 20120426
  Receipt Date: 20120409
  Transmission Date: 20120825
  Serious: No
  Sender: FDA-Public Use
  Company Number: US-BAYER-2012-034718

PATIENT
  Sex: Female

DRUGS (1)
  1. MIRENA [Suspect]
     Dosage: UNK
     Dates: start: 20110401

REACTIONS (5)
  - FOOD CRAVING [None]
  - NAUSEA [None]
  - MENSTRUATION IRREGULAR [None]
  - HUNGER [None]
  - ABDOMINAL DISTENSION [None]
